FAERS Safety Report 10794985 (Version 1)
Quarter: 2015Q1

REPORT INFORMATION
  Report Type: Spontaneous
  Country: US (occurrence: US)
  Receive Date: 20150214
  Receipt Date: 20150214
  Transmission Date: 20150721
  Serious: No
  Sender: FDA-Public Use
  Company Number: US-GLAXOSMITHKLINE-A1069896A

PATIENT

DRUGS (2)
  1. NICORETTE [Suspect]
     Active Substance: NICOTINE
     Indication: EX-TOBACCO USER
  2. NICORETTE WHITE ICE MINT [Suspect]
     Active Substance: NICOTINE
     Indication: EX-TOBACCO USER
     Dates: start: 2011

REACTIONS (10)
  - Arthralgia [Unknown]
  - Dizziness [Unknown]
  - Hypersensitivity [Not Recovered/Not Resolved]
  - Arthritis [Unknown]
  - Furuncle [Recovered/Resolved]
  - Inflammation [Unknown]
  - Malaise [Unknown]
  - Skin lesion [Recovered/Resolved]
  - Skin ulcer [Recovered/Resolved]
  - Nicotine dependence [Unknown]
